FAERS Safety Report 6165170-6 (Version None)
Quarter: 2009Q2

REPORT INFORMATION
  Report Type: 
  Country: None (occurrence: None)
  Receive Date: 20090423
  Receipt Date: 20090414
  Transmission Date: 20091009
  Serious: Yes (Death)
  Sender: FDA-Public Use
  Company Number: GB-TEVA-191959ISR

PATIENT

DRUGS (3)
  1. BUMETANIDE [Suspect]
  2. RAMIPRIL [Suspect]
  3. SPIRONOLACTONE [Suspect]

REACTIONS (1)
  - RENAL FAILURE [None]
